FAERS Safety Report 14882789 (Version 16)
Quarter: 2019Q2

REPORT INFORMATION
  Report Type: Spontaneous
  Country: CA (occurrence: CA)
  Receive Date: 20180511
  Receipt Date: 20190628
  Transmission Date: 20190711
  Serious: Yes (Hospitalization, Other)
  Sender: FDA-Public Use
  Company Number: CA-CELLTRION INC.-2017CA011444

PATIENT

DRUGS (37)
  1. INFLECTRA [Suspect]
     Active Substance: INFLIXIMAB-DYYB
     Dosage: 650 MG, MAINTENANCE EVERY 6 WEEKS
     Route: 042
     Dates: start: 20171219, end: 20171219
  2. INFLECTRA [Suspect]
     Active Substance: INFLIXIMAB-DYYB
     Dosage: 800 MG, MONTHLY (EVERY 4 WEEKS)
     Route: 042
     Dates: start: 20181002, end: 20181002
  3. INFLECTRA [Suspect]
     Active Substance: INFLIXIMAB-DYYB
     Dosage: 800 MG, MONTHLY (EVERY 4 WEEKS)
     Route: 042
     Dates: start: 20181030, end: 20181030
  4. HYDROMORPHONE [Concomitant]
     Active Substance: HYDROMORPHONE
     Dosage: UNK, AS NEEDED
  5. INFLECTRA [Suspect]
     Active Substance: INFLIXIMAB-DYYB
     Dosage: 850 MG, MONTHLY (MAINTENANCE EVERY 4 WEEKS)
     Route: 042
     Dates: start: 20180116, end: 20180116
  6. INFLECTRA [Suspect]
     Active Substance: INFLIXIMAB-DYYB
     Dosage: 780 MG, MONTHLY (EVERY 4 WEEKS)
     Route: 042
     Dates: start: 20190319
  7. PURINETHOL [Concomitant]
     Active Substance: MERCAPTOPURINE
     Dosage: UNK
  8. TRAZODONE [Concomitant]
     Active Substance: TRAZODONE HYDROCHLORIDE
     Dosage: UNK
  9. AMLODIPINE [Concomitant]
     Active Substance: AMLODIPINE BESYLATE
     Dosage: UNK
  10. ASA [Concomitant]
     Active Substance: ASPIRIN
     Dosage: UNK
  11. INFLECTRA [Suspect]
     Active Substance: INFLIXIMAB-DYYB
     Dosage: 650 MG, MAINTENANCE EVERY 6 WEEKS
     Route: 042
     Dates: start: 20171219, end: 20171219
  12. INFLECTRA [Suspect]
     Active Substance: INFLIXIMAB-DYYB
     Dosage: 780 MG, MONTHLY (EVERY 4 WEEKS)
     Route: 042
     Dates: start: 20190219
  13. INFLECTRA [Suspect]
     Active Substance: INFLIXIMAB-DYYB
     Dosage: 780 MG, MONTHLY (EVERY 4 WEEKS)
     Route: 042
     Dates: start: 20190514
  14. INFLECTRA [Suspect]
     Active Substance: INFLIXIMAB-DYYB
     Dosage: 800 MG, EVERY 6 WEEKS
     Route: 042
     Dates: start: 20180731, end: 20180731
  15. INFLECTRA [Suspect]
     Active Substance: INFLIXIMAB-DYYB
     Dosage: 780 MG, MONTHLY (EVERY 4 WEEKS)
     Route: 042
     Dates: start: 20181127, end: 20181127
  16. INFLECTRA [Suspect]
     Active Substance: INFLIXIMAB-DYYB
     Dosage: 780 MG, MONTHLY (EVERY 4 WEEKS)
     Route: 042
     Dates: start: 20190416
  17. INFLECTRA [Suspect]
     Active Substance: INFLIXIMAB-DYYB
     Dosage: 780 MG, MONTHLY (EVERY 4 WEEKS)
     Route: 042
     Dates: start: 20190514
  18. METFORMIN [Concomitant]
     Active Substance: METFORMIN HYDROCHLORIDE
     Dosage: UNK
  19. INFLECTRA [Suspect]
     Active Substance: INFLIXIMAB-DYYB
     Dosage: 400 MG, AT 6 WEEKS, THEN EVERY 8 WEEKS
     Route: 042
     Dates: start: 20170928, end: 20170928
  20. INFLECTRA [Suspect]
     Active Substance: INFLIXIMAB-DYYB
     Dosage: 800 MG, EVERY 6 WEEKS
     Route: 042
     Dates: start: 20180502, end: 20180502
  21. INFLECTRA [Suspect]
     Active Substance: INFLIXIMAB-DYYB
     Dosage: 800 MG, EVERY 6 WEEKS
     Route: 042
     Dates: start: 20180620, end: 20180620
  22. INFLECTRA [Suspect]
     Active Substance: INFLIXIMAB-DYYB
     Dosage: 780 MG, MONTHLY (EVERY 4 WEEKS)
     Route: 042
     Dates: start: 20181228, end: 20181228
  23. INFLECTRA [Suspect]
     Active Substance: INFLIXIMAB-DYYB
     Dosage: 750 MG, AT 0, 2 WEEKS
     Route: 042
     Dates: start: 20170831, end: 20170831
  24. INFLECTRA [Suspect]
     Active Substance: INFLIXIMAB-DYYB
     Dosage: 650 MG, MAINTENANCE EVERY 6 WEEKS
     Route: 042
     Dates: start: 20171106, end: 20171106
  25. PANTOPRAZOLE [Concomitant]
     Active Substance: PANTOPRAZOLE
     Dosage: UNK
  26. PLAVIX [Concomitant]
     Active Substance: CLOPIDOGREL BISULFATE
     Dosage: 75 MG, 1X/DAY
     Route: 065
     Dates: start: 2018
  27. INFLECTRA [Suspect]
     Active Substance: INFLIXIMAB-DYYB
     Dosage: 780 MG, MONTHLY (EVERY 4 WEEKS)
     Route: 042
     Dates: start: 20180906, end: 20180906
  28. QUETIAPINE. [Concomitant]
     Active Substance: QUETIAPINE
     Dosage: UNK
  29. INFLECTRA [Suspect]
     Active Substance: INFLIXIMAB-DYYB
     Indication: CROHN^S DISEASE
     Dosage: 750 MG, AT 0, 2 WEEKS
     Route: 042
     Dates: start: 20170819, end: 20170819
  30. INFLECTRA [Suspect]
     Active Substance: INFLIXIMAB-DYYB
     Dosage: 650 MG, MAINTENANCE EVERY 6 WEEKS
     Route: 042
     Dates: start: 20171219, end: 20171219
  31. INFLECTRA [Suspect]
     Active Substance: INFLIXIMAB-DYYB
     Dosage: 850 MG, MONTHLY (MAINTENANCE EVERY 4 WEEKS)
     Route: 042
     Dates: start: 20180215, end: 20180215
  32. INFLECTRA [Suspect]
     Active Substance: INFLIXIMAB-DYYB
     Dosage: 850 MG, EVERY 5 WEEKS
     Route: 042
     Dates: start: 20180320, end: 20180320
  33. INFLECTRA [Suspect]
     Active Substance: INFLIXIMAB-DYYB
     Dosage: 800 MG, EVERY 6 WEEKS
     Route: 042
     Dates: start: 20180731, end: 20180731
  34. INFLECTRA [Suspect]
     Active Substance: INFLIXIMAB-DYYB
     Dosage: 780 MG, MONTHLY (EVERY 4 WEEKS)
     Route: 042
     Dates: start: 20190122
  35. INFLECTRA [Suspect]
     Active Substance: INFLIXIMAB-DYYB
     Dosage: 780 MG, MONTHLY (EVERY 4 WEEKS)
     Route: 042
     Dates: start: 20190611
  36. SOLU-MEDROL [Concomitant]
     Active Substance: METHYLPREDNISOLONE SODIUM SUCCINATE
     Dosage: UNK
     Route: 065
  37. TELMISARTAN. [Concomitant]
     Active Substance: TELMISARTAN
     Dosage: UNK

REACTIONS (11)
  - Condition aggravated [Unknown]
  - Product use issue [Unknown]
  - Cough [Unknown]
  - Off label use [Unknown]
  - Weight increased [Unknown]
  - Gastrointestinal inflammation [Unknown]
  - Uveitis [Unknown]
  - Hypertension [Unknown]
  - Rotator cuff syndrome [Recovering/Resolving]
  - Blood pressure fluctuation [Unknown]
  - Product use issue [Unknown]

NARRATIVE: CASE EVENT DATE: 20170819
